FAERS Safety Report 7115400-9 (Version None)
Quarter: 2010Q4

REPORT INFORMATION
  Report Type: 
  Country: None (occurrence: None)
  Receive Date: 20101122
  Receipt Date: 20101113
  Transmission Date: 20110411
  Serious: Yes (Other)
  Sender: FDA-Public Use
  Company Number: US-B.I. PHARMACEUTICALS,INC./RIDGEFIELD-2010-BP-12772BP

PATIENT
  Age: 92 Year
  Sex: Male

DRUGS (8)
  1. DULCOLAX [Suspect]
     Indication: CONSTIPATION
     Dosage: 10 MG
     Route: 048
  2. ASPIRIN [Concomitant]
     Indication: ANTICOAGULANT THERAPY
     Dosage: 325 MG
  3. ATENOLOL [Concomitant]
     Indication: HYPERTENSION
  4. HYDROCHLOROTHIAZIDE [Concomitant]
     Indication: HYPERTENSION
  5. FINASTERIDE [Concomitant]
     Indication: BLADDER DISORDER
  6. FINASTERIDE [Concomitant]
     Indication: PROPHYLAXIS
  7. TAMSULOSIN HCL [Concomitant]
     Indication: BLADDER DISORDER
  8. TAMSULOSIN HCL [Concomitant]
     Indication: PROPHYLAXIS

REACTIONS (2)
  - ABDOMINAL PAIN UPPER [None]
  - BLADDER DISORDER [None]
